FAERS Safety Report 17466899 (Version 1)
Quarter: 2020Q1

REPORT INFORMATION
  Report Type: Spontaneous
  Country: US (occurrence: US)
  Receive Date: 20200213
  Receipt Date: 20200213
  Transmission Date: 20200409
  Serious: Yes (Hospitalization)
  Sender: FDA-Public Use
  Company Number: None

PATIENT
  Age: 85 Year
  Sex: Male
  Weight: 62 kg

DRUGS (1)
  1. OBINUTUZUMAB (OBINUTUZUMAB 25MG/ML INJ,VIL,40ML) [Suspect]
     Active Substance: OBINUTUZUMAB
     Indication: CHRONIC LYMPHOCYTIC LEUKAEMIA
     Route: 042
     Dates: start: 20190805, end: 20190805

REACTIONS (5)
  - Nausea [None]
  - Acute respiratory failure [None]
  - Back pain [None]
  - Vomiting [None]
  - Atrial fibrillation [None]

NARRATIVE: CASE EVENT DATE: 20190805
